FAERS Safety Report 15566290 (Version 2)
Quarter: 2018Q4

REPORT INFORMATION
  Report Type: Report from Study
  Country: DE (occurrence: DE)
  Receive Date: 20181030
  Receipt Date: 20181115
  Transmission Date: 20190205
  Serious: Yes (Hospitalization)
  Sender: FDA-Public Use
  Company Number: DE-BIOGEN-2013BI085052

PATIENT
  Age: 50 Year
  Sex: Male

DRUGS (12)
  1. BACLOFEN. [Concomitant]
     Active Substance: BACLOFEN
     Route: 065
     Dates: start: 20130513, end: 20130513
  2. TYSABRI [Suspect]
     Active Substance: NATALIZUMAB
     Indication: RELAPSING-REMITTING MULTIPLE SCLEROSIS
     Dosage: INFUSED OVER 1 HOUR
     Route: 042
     Dates: start: 20120625
  3. LYRICA [Concomitant]
     Active Substance: PREGABALIN
     Indication: PARAESTHESIA
     Route: 065
     Dates: start: 20110101
  4. VESICARE [Concomitant]
     Active Substance: SOLIFENACIN SUCCINATE
     Indication: NEUROGENIC BLADDER
     Route: 065
     Dates: start: 20121212
  5. BACLOFEN. [Concomitant]
     Active Substance: BACLOFEN
     Indication: MUSCLE SPASTICITY
     Route: 065
     Dates: start: 20120101
  6. BACLOFEN. [Concomitant]
     Active Substance: BACLOFEN
     Route: 065
  7. AMANDATIN [Concomitant]
     Indication: PRODUCT USED FOR UNKNOWN INDICATION
     Dosage: 100
     Route: 065
  8. ASPIRIN. [Concomitant]
     Active Substance: ASPIRIN
     Indication: ACUTE MYOCARDIAL INFARCTION
     Route: 065
     Dates: start: 20060101
  9. TORASEMID [Concomitant]
     Active Substance: TORSEMIDE
     Indication: OEDEMA
     Dosage: WHEN NECESSARY
     Route: 065
  10. MADOPAR [Concomitant]
     Active Substance: BENSERAZIDE HYDROCHLORIDE\LEVODOPA
     Indication: PARKINSONISM
     Route: 065
     Dates: start: 20130212
  11. ORFIRIL LONG [Concomitant]
     Active Substance: VALPROIC ACID
     Indication: PRODUCT USED FOR UNKNOWN INDICATION
     Dosage: 500
     Route: 065
  12. LOPEDIUM [Concomitant]
     Active Substance: LOPERAMIDE
     Indication: PRODUCT USED FOR UNKNOWN INDICATION
     Dosage: WHEN NECESSARY
     Route: 065

REACTIONS (2)
  - Toxicity to various agents [Recovered/Resolved]
  - Electroencephalogram abnormal [Recovered/Resolved]

NARRATIVE: CASE EVENT DATE: 20130513
